FAERS Safety Report 13160326 (Version 2)
Quarter: 2017Q1

REPORT INFORMATION
  Report Type: Spontaneous
  Country: SE (occurrence: SE)
  Receive Date: 20170127
  Receipt Date: 20170202
  Transmission Date: 20170428
  Serious: Yes (Death, Other)
  Sender: FDA-Public Use
  Company Number: SE-GILEAD-2017-0255326

PATIENT
  Age: 58 Year
  Sex: Male

DRUGS (1)
  1. HARVONI [Suspect]
     Active Substance: LEDIPASVIR\SOFOSBUVIR
     Indication: HEPATITIS C
     Route: 048
     Dates: start: 20150615, end: 20151130

REACTIONS (1)
  - Hepatocellular carcinoma [Fatal]

NARRATIVE: CASE EVENT DATE: 201508
